FAERS Safety Report 10208393 (Version 1)
Quarter: 2014Q2

REPORT INFORMATION
  Report Type: Spontaneous
  Country: US (occurrence: None)
  Receive Date: 20140529
  Receipt Date: 20140529
  Transmission Date: 20141212
  Serious: Yes (Hospitalization)
  Sender: FDA-Public Use
  Company Number: None

PATIENT
  Age: 61 Year
  Sex: Male

DRUGS (2)
  1. WARFARIN [Suspect]
     Indication: PROTEIN S DEFICIENCY
     Route: 048
     Dates: start: 20140401, end: 20140410
  2. ASPIRIN [Suspect]
     Indication: THROMBOSIS PROPHYLAXIS
     Route: 048
     Dates: start: 20120331, end: 20140410

REACTIONS (2)
  - Anaemia [None]
  - Gastric haemorrhage [None]
